FAERS Safety Report 19370633 (Version 1)
Quarter: 2021Q2

REPORT INFORMATION
  Report Type: Spontaneous
  Country: US (occurrence: US)
  Receive Date: 20210604
  Receipt Date: 20210604
  Transmission Date: 20210717
  Serious: Yes (Death)
  Sender: FDA-Public Use
  Company Number: US-MTPC-MTDA2021-0013600

PATIENT

DRUGS (1)
  1. RILUZOLE. [Suspect]
     Active Substance: RILUZOLE
     Indication: AMYOTROPHIC LATERAL SCLEROSIS
     Dosage: 40 MILLIGRAM ODT
     Route: 048

REACTIONS (3)
  - Death [Fatal]
  - Hypoaesthesia [Unknown]
  - Paraesthesia [Unknown]
